FAERS Safety Report 14260675 (Version 3)
Quarter: 2017Q4

REPORT INFORMATION
  Report Type: Spontaneous
  Country: CA (occurrence: CA)
  Receive Date: 20171207
  Receipt Date: 20171221
  Transmission Date: 20180321
  Serious: Yes (Hospitalization, Other)
  Sender: FDA-Public Use
  Company Number: CA-PFIZER INC-2017512058

PATIENT
  Age: 47 Year
  Sex: Female

DRUGS (2)
  1. SUTENT [Suspect]
     Active Substance: SUNITINIB MALATE
     Dosage: 50 MG, CYCLIC (1X/DAY FOR 4 WEEKS, 2 WEEKS OFF)
     Route: 048
     Dates: start: 20171129
  2. SUTENT [Suspect]
     Active Substance: SUNITINIB MALATE
     Indication: METASTATIC RENAL CELL CARCINOMA
     Dosage: 50 MG, ONCE DAILY FOR 4 WEEKS
     Route: 048

REACTIONS (2)
  - Pulmonary oedema [Unknown]
  - Pain [Not Recovered/Not Resolved]
